FAERS Safety Report 9121983 (Version 2)
Quarter: 2013Q2

REPORT INFORMATION
  Report Type: Spontaneous
  Country: GB (occurrence: GB)
  Receive Date: 20130114
  Receipt Date: 20130523
  Transmission Date: 20140414
  Serious: Yes (Other)
  Sender: FDA-Public Use
  Company Number: GB-JNJFOC-20130105233

PATIENT
  Sex: Male

DRUGS (5)
  1. STELARA [Suspect]
     Indication: PSORIASIS
     Dosage: RIGHT ARM
     Route: 058
  2. STEROIDS NOS [Concomitant]
     Route: 065
  3. STEROIDS NOS [Concomitant]
     Route: 065
  4. RAMIPRIL [Concomitant]
     Route: 065
  5. CLOPIDOGREL [Concomitant]
     Route: 065

REACTIONS (3)
  - Myositis [Unknown]
  - Influenza [Unknown]
  - Psoriasis [Not Recovered/Not Resolved]
